FAERS Safety Report 8349245-9 (Version None)
Quarter: 2012Q2

REPORT INFORMATION
  Report Type: 
  Country: None (occurrence: None)
  Receive Date: 20120510
  Receipt Date: 20120501
  Transmission Date: 20120825
  Serious: Yes (Hospitalization, Other)
  Sender: FDA-Public Use
  Company Number: PHHY2012US026734

PATIENT
  Age: 51 Year
  Sex: Female

DRUGS (1)
  1. GILENYA [Suspect]
     Indication: RELAPSING-REMITTING MULTIPLE SCLEROSIS
     Dosage: 0.5 MG, QD
     Route: 048

REACTIONS (8)
  - IMMUNE RECONSTITUTION SYNDROME [None]
  - CSF GLUCOSE INCREASED [None]
  - CENTRAL NERVOUS SYSTEM LESION [None]
  - GRAND MAL CONVULSION [None]
  - WHITE BLOOD CELL COUNT DECREASED [None]
  - LYMPHOCYTE COUNT DECREASED [None]
  - BLINDNESS [None]
  - ELECTROENCEPHALOGRAM ABNORMAL [None]
